FAERS Safety Report 12399680 (Version 1)
Quarter: 2016Q2

REPORT INFORMATION
  Report Type: Spontaneous
  Country: US (occurrence: US)
  Receive Date: 20160524
  Receipt Date: 20160524
  Transmission Date: 20160815
  Serious: Yes (Hospitalization, Other)
  Sender: FDA-Public Use
  Company Number: ADR-2015-01595

PATIENT
  Age: 53 Year
  Sex: Male

DRUGS (1)
  1. BACLOFEN. [Suspect]
     Active Substance: BACLOFEN
     Route: 037

REACTIONS (7)
  - Sedation [Unknown]
  - Bladder disorder [Unknown]
  - Performance status decreased [Unknown]
  - Hypersomnia [Unknown]
  - Overdose [Unknown]
  - Hypotonia [Unknown]
  - Fall [Unknown]
